FAERS Safety Report 8515019-9 (Version None)
Quarter: 2012Q3

REPORT INFORMATION
  Report Type: 
  Country: None (occurrence: None)
  Receive Date: 20120717
  Receipt Date: 20120712
  Transmission Date: 20120928
  Serious: Yes (Other)
  Sender: FDA-Public Use
  Company Number: US-PFIZER INC-2012169148

PATIENT
  Age: 32 Year
  Sex: Male

DRUGS (4)
  1. VENLAFAXINE HCL [Suspect]
     Indication: MAJOR DEPRESSION
     Dosage: 150 MG/DAY
  2. INDINAVIR [Interacting]
     Indication: HIV INFECTION
     Dosage: UNK
  3. LAMIVUDINE [Concomitant]
     Indication: HIV INFECTION
     Dosage: UNK
  4. ZIDOVUDINE [Concomitant]
     Indication: HIV INFECTION
     Dosage: UNK

REACTIONS (3)
  - DRUG INTERACTION [None]
  - BLOOD HIV RNA INCREASED [None]
  - LETHARGY [None]
